FAERS Safety Report 4521047-0 (Version None)
Quarter: 2004Q4

REPORT INFORMATION
  Report Type: 
  Country: None (occurrence: None)
  Receive Date: 20041206
  Receipt Date: 20040617
  Transmission Date: 20050328
  Serious: Yes (Hospitalization)
  Sender: FDA-Public Use
  Company Number: F02200400048

PATIENT
  Age: 59 Year
  Sex: Male

DRUGS (6)
  1. XATRAL - (ALFUZOSIN) - TABLET PR - 10 MG [Suspect]
     Indication: BENIGN PROSTATIC HYPERPLASIA
     Dosage: 10 MG OD
     Route: 048
     Dates: start: 20001202, end: 20040520
  2. ART 50 (DIACEREIN) [Concomitant]
  3. DENTENSIEL (BISOPROLOL) [Concomitant]
  4. OMEPRAZOLE [Concomitant]
  5. DHEA [Concomitant]
  6. LANSOPRAZOLE [Concomitant]

REACTIONS (6)
  - BENIGN PROSTATIC HYPERPLASIA [None]
  - DRUG INEFFECTIVE [None]
  - POLYDIPSIA [None]
  - POLYURIA [None]
  - PROSTATIC SPECIFIC ANTIGEN INCREASED [None]
  - RETROGRADE EJACULATION [None]
